FAERS Safety Report 8941707 (Version 1)
Quarter: 2012Q4

REPORT INFORMATION
  Report Type: 
  Country: BR (occurrence: BR)
  Receive Date: 20121203
  Receipt Date: 20121203
  Transmission Date: 20130627
  Serious: Yes (Other)
  Sender: FDA-Public Use
  Company Number: PHHY2012BR110478

PATIENT
  Sex: Female

DRUGS (2)
  1. DIOVAN [Suspect]
     Indication: HYPERTENSION
     Dosage: 320 mg, QD
  2. ABLOK [Suspect]
     Dosage: UNK UKN, UNK

REACTIONS (2)
  - Fall [Unknown]
  - Upper limb fracture [Unknown]
